FAERS Safety Report 5003661-1 (Version None)
Quarter: 2006Q2

REPORT INFORMATION
  Report Type: 
  Country: None (occurrence: None)
  Receive Date: 20060516
  Receipt Date: 20060117
  Transmission Date: 20061013
  Serious: Yes (Hospitalization, Disabling)
  Sender: FDA-Public Use
  Company Number: US-MERCK-0601USA01974

PATIENT
  Age: 53 Year
  Sex: Female
  Weight: 120 kg

DRUGS (13)
  1. ACCUPRIL [Concomitant]
     Indication: HYPERTENSION
     Route: 065
     Dates: start: 20000101
  2. LESCOL [Concomitant]
     Indication: HYPERTENSION
     Route: 065
  3. SOMA [Concomitant]
     Route: 065
  4. ZANTAC [Concomitant]
     Route: 048
     Dates: start: 20020514
  5. ASPIRIN [Concomitant]
     Route: 065
  6. LORTAB [Concomitant]
     Indication: PAIN
     Route: 048
     Dates: start: 20040623
  7. ATENOLOL [Concomitant]
     Route: 065
     Dates: start: 20040813
  8. ULTRAM [Concomitant]
     Route: 048
  9. VIOXX [Suspect]
     Indication: BACK PAIN
     Route: 048
     Dates: start: 20010726, end: 20020801
  10. VIOXX [Suspect]
     Route: 048
     Dates: start: 20040623
  11. VIOXX [Suspect]
     Route: 048
     Dates: start: 20040813
  12. VIOXX [Suspect]
     Route: 065
     Dates: start: 20040628
  13. ZETIA [Concomitant]
     Indication: BLOOD CHOLESTEROL
     Route: 048
     Dates: start: 20000101

REACTIONS (14)
  - ARTHRALGIA [None]
  - BACK INJURY [None]
  - CEREBROVASCULAR ACCIDENT [None]
  - DERMAL CYST [None]
  - FALL [None]
  - GASTROOESOPHAGEAL REFLUX DISEASE [None]
  - HAEMATURIA [None]
  - KNEE OPERATION [None]
  - OBESITY [None]
  - OEDEMA PERIPHERAL [None]
  - OSTEOARTHRITIS [None]
  - PEPTIC ULCER [None]
  - RHEUMATOID ARTHRITIS [None]
  - TRANSIENT ISCHAEMIC ATTACK [None]
